FAERS Safety Report 6927906-3 (Version None)
Quarter: 2010Q3

REPORT INFORMATION
  Report Type: 
  Country: None (occurrence: None)
  Receive Date: 20100817
  Receipt Date: 20100804
  Transmission Date: 20110219
  Serious: Yes (Hospitalization)
  Sender: FDA-Public Use
  Company Number: JP-ELI_LILLY_AND_COMPANY-JP201006008081

PATIENT
  Sex: Male
  Weight: 23.5 kg

DRUGS (4)
  1. ATOMOXETINE HCL [Suspect]
     Indication: ATTENTION DEFICIT/HYPERACTIVITY DISORDER
     Dosage: 10 MG, DAILY (1/D)
     Route: 048
     Dates: start: 20090723, end: 20090805
  2. ATOMOXETINE HCL [Suspect]
     Dosage: 15 MG, DAILY (1/D)
     Route: 048
     Dates: start: 20090806, end: 20090819
  3. ATOMOXETINE HCL [Suspect]
     Dosage: 20 MG, DAILY (1/D)
     Route: 048
     Dates: start: 20090820, end: 20090902
  4. ATOMOXETINE HCL [Suspect]
     Dosage: 30 MG, DAILY (1/D)
     Route: 048
     Dates: start: 20090903, end: 20100608

REACTIONS (3)
  - HEPATIC FUNCTION ABNORMAL [None]
  - INFECTION [None]
  - VOMITING [None]
